FAERS Safety Report 16441918 (Version 1)
Quarter: 2019Q2

REPORT INFORMATION
  Report Type: Report from Study
  Country: None (occurrence: US)
  Receive Date: 20190617
  Receipt Date: 20190617
  Transmission Date: 20190711
  Serious: No
  Sender: FDA-Public Use
  Company Number: US-US WORLDMEDS, LLC-USW201809-001411

PATIENT
  Age: 71 Year
  Sex: Female
  Weight: 54.43 kg

DRUGS (6)
  1. CARBIDOPA/LEVODOPA [Concomitant]
     Active Substance: CARBIDOPA\LEVODOPA
     Dosage: 25/100 BID
  2. APOKYN [Suspect]
     Active Substance: APOMORPHINE HYDROCHLORIDE
     Indication: PARKINSON^S DISEASE
     Route: 058
     Dates: start: 20180810, end: 20180920
  3. NUEDEXTA [Concomitant]
     Active Substance: DEXTROMETHORPHAN HYDROBROMIDE\QUINIDINE SULFATE
     Dosage: 20-10 MG QD
  4. GABAPENTIN. [Concomitant]
     Active Substance: GABAPENTIN
  5. JANUMET [Concomitant]
     Active Substance: METFORMIN HYDROCHLORIDE\SITAGLIPTIN PHOSPHATE
     Dosage: 50-500 MG TWICE A DAY
  6. MEMANTINE. [Concomitant]
     Active Substance: MEMANTINE
     Dosage: 7 MG QD

REACTIONS (4)
  - Tremor [Unknown]
  - Gait disturbance [Unknown]
  - Drooling [Unknown]
  - Feeling hot [Unknown]

NARRATIVE: CASE EVENT DATE: 20180911
